FAERS Safety Report 17620479 (Version 3)
Quarter: 2020Q3

REPORT INFORMATION
  Report Type: Spontaneous
  Country: BR (occurrence: BR)
  Receive Date: 20200403
  Receipt Date: 20200811
  Transmission Date: 20201102
  Serious: Yes (Death, Other)
  Sender: FDA-Public Use
  Company Number: BR-AMGEN-BRASP2020053341

PATIENT

DRUGS (1)
  1. CINACALCET HCL [Suspect]
     Active Substance: CINACALCET HYDROCHLORIDE
     Indication: HYPERPARATHYROIDISM
     Dosage: 30 MILLIGRAM, QD
     Route: 048

REACTIONS (7)
  - Graft loss [Unknown]
  - Gastrointestinal disorder [Recovering/Resolving]
  - Infection [Unknown]
  - Death [Fatal]
  - Adverse event [Unknown]
  - Cardiovascular disorder [Unknown]
  - Treatment failure [Unknown]
